FAERS Safety Report 25385635 (Version 1)
Quarter: 2025Q2

REPORT INFORMATION
  Report Type: Report from Study
  Country: IT (occurrence: IT)
  Receive Date: 20250602
  Receipt Date: 20250602
  Transmission Date: 20250717
  Serious: Yes (Death, Hospitalization)
  Sender: MYLAN
  Company Number: IT-MYLANLABS-2025M1044935

PATIENT
  Age: 88 Year

DRUGS (7)
  1. TRANEXAMIC ACID [Suspect]
     Active Substance: TRANEXAMIC ACID
     Indication: Subdural haematoma
  2. TRANEXAMIC ACID [Suspect]
     Active Substance: TRANEXAMIC ACID
     Indication: Cerebral haemorrhage
  3. PROTHROMBIN [Suspect]
     Active Substance: PROTHROMBIN
     Indication: Subdural haematoma
  4. PROTHROMBIN [Suspect]
     Active Substance: PROTHROMBIN
     Indication: Cerebral haemorrhage
  5. PHYTONADIONE [Suspect]
     Active Substance: PHYTONADIONE
     Indication: Subdural haematoma
  6. PHYTONADIONE [Suspect]
     Active Substance: PHYTONADIONE
     Indication: Cerebral haemorrhage
  7. HEPARIN [Concomitant]
     Active Substance: HEPARIN SODIUM
     Indication: Product used for unknown indication

REACTIONS (1)
  - Drug ineffective [Fatal]
